FAERS Safety Report 13806006 (Version 1)
Quarter: 2017Q3

REPORT INFORMATION
  Report Type: Spontaneous
  Country: US (occurrence: US)
  Receive Date: 20170728
  Receipt Date: 20170728
  Transmission Date: 20171127
  Serious: No
  Sender: FDA-Public Use
  Company Number: US-GLAXOSMITHKLINE-US2017GSK116603

PATIENT
  Sex: Male
  Weight: 81.63 kg

DRUGS (13)
  1. CARVEDILOL TABLET [Suspect]
     Active Substance: CARVEDILOL
  2. ZETIA [Concomitant]
     Active Substance: EZETIMIBE
  3. HYDROXYZINE [Concomitant]
     Active Substance: HYDROXYZINE HYDROCHLORIDE
  4. AMLODIPINE [Concomitant]
     Active Substance: AMLODIPINE BESYLATE
  5. PANTOPRAZOLE [Concomitant]
     Active Substance: PANTOPRAZOLE
  6. METOPROLOL. [Concomitant]
     Active Substance: METOPROLOL
  7. ASPIRIN. [Concomitant]
     Active Substance: ASPIRIN
  8. LORAZEPAM. [Concomitant]
     Active Substance: LORAZEPAM
  9. ALLOPURINOL. [Concomitant]
     Active Substance: ALLOPURINOL
  10. MECLIZINE [Concomitant]
     Active Substance: MECLIZINE HYDROCHLORIDE
  11. CALCITRIOL. [Concomitant]
     Active Substance: CALCITRIOL
  12. COUMADIN [Concomitant]
     Active Substance: WARFARIN SODIUM
  13. PRAVASTATIN. [Concomitant]
     Active Substance: PRAVASTATIN

REACTIONS (2)
  - Constipation [Unknown]
  - Balanoposthitis [Unknown]
